FAERS Safety Report 9121158 (Version 1)
Quarter: 2013Q1

REPORT INFORMATION
  Report Type: Spontaneous
  Country: US (occurrence: US)
  Receive Date: 20130225
  Receipt Date: 20130225
  Transmission Date: 20140127
  Serious: No
  Sender: FDA-Public Use
  Company Number: US-B.I. PHARMACEUTICALS,INC./RIDGEFIELD-2013-BI-04708BP

PATIENT
  Age: 65 Year
  Sex: Female

DRUGS (12)
  1. SPIRIVA [Suspect]
     Dosage: 18 MCG
     Route: 055
  2. SPIRIVA [Suspect]
     Dosage: 18 MCG
     Route: 048
     Dates: start: 20130219, end: 20130219
  3. ALDACTONE [Concomitant]
     Dosage: 25 MG
     Route: 048
  4. COUMADIN [Concomitant]
     Dosage: 7.5 MG
     Route: 048
  5. COUMADIN [Concomitant]
     Dosage: 5 MG
     Route: 048
  6. GLYBURIDE [Concomitant]
     Indication: DIABETES MELLITUS
     Dosage: 2.5 MG
     Route: 048
  7. LASIX [Concomitant]
     Dosage: 80 MG
     Route: 048
  8. METFORMIN [Concomitant]
     Dosage: 500 MG
     Route: 048
  9. POTASSIUM [Concomitant]
     Dosage: 5 MEQ
     Route: 048
  10. TRILIPIX [Concomitant]
     Indication: BLOOD CHOLESTEROL INCREASED
     Route: 048
  11. METOPROLOL [Concomitant]
     Indication: HYPERTENSION
     Route: 048
  12. NEXIUM [Concomitant]
     Route: 048

REACTIONS (5)
  - Nasal congestion [Not Recovered/Not Resolved]
  - Oropharyngeal pain [Not Recovered/Not Resolved]
  - Nasal inflammation [Not Recovered/Not Resolved]
  - Incorrect route of drug administration [Recovered/Resolved]
  - Nasal congestion [Not Recovered/Not Resolved]
